FAERS Safety Report 8611634 (Version 3)
Quarter: 2013Q1

REPORT INFORMATION
  Report Type: Spontaneous
  Country: US (occurrence: US)
  Receive Date: 20120613
  Receipt Date: 20130312
  Transmission Date: 20140127
  Serious: Yes (Hospitalization)
  Sender: FDA-Public Use
  Company Number: US-BAYER-2012-056978

PATIENT
  Age: 30 Year
  Sex: Female
  Weight: 72.56 kg

DRUGS (23)
  1. YAZ [Suspect]
     Indication: CONTRACEPTION
  2. YAZ [Suspect]
     Indication: ACNE
  3. YAZ [Suspect]
     Indication: PREMENSTRUAL DYSPHORIC DISORDER
  4. YASMIN [Suspect]
     Indication: CONTRACEPTION
     Dosage: UNK
     Dates: start: 2006, end: 201108
  5. YASMIN [Suspect]
     Indication: ACNE
  6. YASMIN [Suspect]
     Indication: PREMENSTRUAL DYSPHORIC DISORDER
  7. CYMBALTA [Concomitant]
     Indication: DEPRESSION
     Dosage: 60 MG, DAILY
     Dates: start: 20110623
  8. TORADOL [Concomitant]
     Indication: PAIN
     Dosage: 60 MG, UNK
     Route: 030
     Dates: start: 20110630
  9. NORCO [Concomitant]
     Indication: PAIN
     Dosage: 7.5-500 MG, BID
     Route: 048
     Dates: start: 20110630, end: 20110830
  10. NORFLEX [Concomitant]
     Indication: PAIN
     Dosage: 100 MG, UNK
     Route: 048
     Dates: start: 20110630, end: 20120323
  11. BETAMETHASONE [Concomitant]
     Dosage: UNK
     Dates: start: 20110705
  12. VOLTAREN [Concomitant]
  13. CHANTIX [Concomitant]
  14. ERYTHROMYCIN [Concomitant]
     Dosage: 500 MG, UNK
     Dates: start: 20110310
  15. LODRANE [Concomitant]
     Dosage: UNK
     Dates: start: 20110310
  16. MELOXICAM [Concomitant]
     Dosage: 15 MG, UNK
     Dates: start: 20110406
  17. CYCLOBENZAPRINE [Concomitant]
     Dosage: 10 MG, UNK
     Dates: start: 20110417
  18. DICLOFENAC SODIUM [Concomitant]
     Dosage: 75 MG, UNK
     Dates: start: 20110421
  19. HYDROCODONE W/ACETAMINOPHEN [Concomitant]
     Dosage: UNK
     Dates: start: 20110509, end: 20110630
  20. KETOROLAC [Concomitant]
     Dosage: 10 MG, UNK
     Dates: start: 20110509
  21. ORPHENADRINE [Concomitant]
     Dosage: 100 MG, UNK
     Dates: start: 20110509, end: 20110630
  22. MOTRIN [Concomitant]
  23. NSAID^S [Concomitant]

REACTIONS (5)
  - Pulmonary embolism [None]
  - Pain [None]
  - Dyspnoea [None]
  - Anxiety [None]
  - Pulmonary hypertension [None]
